FAERS Safety Report 10649667 (Version 1)
Quarter: 2014Q4

REPORT INFORMATION
  Report Type: Spontaneous
  Country: US (occurrence: US)
  Receive Date: 20141212
  Receipt Date: 20141212
  Transmission Date: 20150529
  Serious: Yes (Disabling, Other)
  Sender: FDA-Public Use
  Company Number: US-WATSON-2014-26321

PATIENT
  Sex: Male

DRUGS (1)
  1. ANDRODERM [Suspect]
     Active Substance: TESTOSTERONE
     Indication: BLOOD TESTOSTERONE DECREASED
     Dosage: UNK
     Route: 065
     Dates: start: 201203

REACTIONS (4)
  - Cardiac operation [Unknown]
  - Myocardial infarction [Unknown]
  - Disability [Unknown]
  - Emotional disorder [Unknown]

NARRATIVE: CASE EVENT DATE: 20121127
